FAERS Safety Report 6260686-6 (Version None)
Quarter: 2009Q3

REPORT INFORMATION
  Report Type: 
  Country: None (occurrence: None)
  Receive Date: 20090706
  Receipt Date: 20090625
  Transmission Date: 20100115
  Serious: Yes (Hospitalization)
  Sender: FDA-Public Use
  Company Number: TPG2009A00676

PATIENT
  Age: 72 Year
  Sex: Female

DRUGS (6)
  1. LANSOPRAZOLE [Suspect]
     Indication: GASTROOESOPHAGEAL REFLUX DISEASE
     Dosage: 30 MG (30 MG, 1 IN 1 D) PER ORAL
     Route: 048
     Dates: start: 20080101, end: 20090501
  2. INDOMETHACIN [Suspect]
     Indication: BACK PAIN
     Dosage: 75 MG (75 MG, 1 IN 1 D) PER ORAL
     Route: 048
     Dates: start: 20080101, end: 20090501
  3. ATACAND [Suspect]
     Indication: ESSENTIAL HYPERTENSION
     Dosage: 8 MG (8 MG, 1 IN 1 D) PER ORAL
     Route: 048
  4. AMLODIPINE [Concomitant]
  5. DIAMICRON MR (GLICLAZIDE) [Concomitant]
  6. ASPIRIN [Concomitant]

REACTIONS (5)
  - COLITIS COLLAGENOUS [None]
  - CONFUSIONAL STATE [None]
  - DEHYDRATION [None]
  - DRUG RESISTANCE [None]
  - RENAL FAILURE ACUTE [None]
